FAERS Safety Report 4330454-0 (Version None)
Quarter: 2004Q1

REPORT INFORMATION
  Report Type: 
  Country: None (occurrence: None)
  Receive Date: 20040329
  Receipt Date: 20040318
  Transmission Date: 20041129
  Serious: Yes (Congenital Anomaly)
  Sender: FDA-Public Use
  Company Number: K200400409

PATIENT
  Sex: Female
  Weight: 1.4 kg

DRUGS (5)
  1. SEPTRA [Suspect]
     Indication: PROPHYLAXIS
     Dosage: TRANSPLACENTAL
     Route: 064
  2. PREDNISOLONE [Suspect]
     Indication: IMMUNOSUPPRESSION
     Dosage: 60 MG, QD, TRANSPLACENTAL
     Route: 064
  3. METHYLPREDNISOLONE [Suspect]
     Indication: IMMUNOSUPPRESSION
     Dosage: 1 G, QID, TRANSPLACENTAL
     Route: 064
  4. CYCLOPHOSPHAMIDE [Suspect]
     Indication: IMMUNOSUPPRESSION
     Dosage: 1 G, QD, TRANSPLACENTAL
     Route: 064
  5. ANTIFUNGALS (ANTIFUNGALS) [Suspect]
     Dosage: ORAL
     Route: 048

REACTIONS (4)
  - DRUG EXPOSURE DURING PREGNANCY [None]
  - PELVIC KIDNEY [None]
  - PREMATURE BABY [None]
  - RENAL AGENESIS [None]
